FAERS Safety Report 4564901-6 (Version None)
Quarter: 2005Q1

REPORT INFORMATION
  Report Type: 
  Country: None (occurrence: None)
  Receive Date: 20050126
  Receipt Date: 20050111
  Transmission Date: 20050727
  Serious: Yes (Hospitalization)
  Sender: FDA-Public Use
  Company Number: JP_041205480

PATIENT
  Age: 60 Year
  Sex: Female
  Weight: 38 kg

DRUGS (10)
  1. EVISTA [Suspect]
     Indication: OSTEOPOROSIS
     Dosage: 60 MG/ 1 DAY
     Route: 048
     Dates: start: 20041115, end: 20041118
  2. ROCALTROL [Concomitant]
  3. DIOVAN [Concomitant]
  4. NORVASC [Concomitant]
  5. RISUMIC         (AMEZINIUM METILSULFATE) [Concomitant]
  6. RESPLEN            (EPRAZINONE HYDROCHLORIDE) [Concomitant]
  7. BECLOMETHASONE DIPROPIONATE [Concomitant]
  8. HOKUNALIN         (TULOBUTEROL HYDROCHLORIDE) [Concomitant]
  9. POSTERISAN [Concomitant]
  10. PURSENNID [Concomitant]

REACTIONS (2)
  - DIFFICULTY IN WALKING [None]
  - MUSCULAR WEAKNESS [None]
